FAERS Safety Report 12547990 (Version 1)
Quarter: 2016Q3

REPORT INFORMATION
  Report Type: Spontaneous
  Country: US (occurrence: US)
  Receive Date: 20160712
  Receipt Date: 20160712
  Transmission Date: 20161109
  Serious: Yes (Hospitalization)
  Sender: FDA-Public Use
  Company Number: US-DRREDDYS-USA/USA/16/0081292

PATIENT
  Age: 51 Year
  Sex: Female
  Weight: 67.59 kg

DRUGS (2)
  1. HABITROL [Suspect]
     Active Substance: NICOTINE
     Route: 061
  2. HABITROL [Suspect]
     Active Substance: NICOTINE
     Indication: SMOKING CESSATION THERAPY
     Route: 061

REACTIONS (7)
  - Oxygen saturation decreased [Recovered/Resolved]
  - Dyspnoea [Recovered/Resolved]
  - Treatment noncompliance [Unknown]
  - Hypertension [Recovered/Resolved]
  - Nicotine dependence [Unknown]
  - Product quality issue [Unknown]
  - Wrong technique in product usage process [Unknown]
